FAERS Safety Report 8465818 (Version 6)
Quarter: 2013Q2

REPORT INFORMATION
  Report Type: Spontaneous
  Country: JP (occurrence: JP)
  Receive Date: 20120319
  Receipt Date: 20130429
  Transmission Date: 20140414
  Serious: Yes (Hospitalization)
  Sender: FDA-Public Use
  Company Number: PHHY2012JP022714

PATIENT
  Age: 66 Year
  Sex: Female

DRUGS (8)
  1. LOPRESOR [Suspect]
     Indication: HYPERTENSION
     Route: 048
     Dates: start: 1994
  2. LOPRESOR [Suspect]
     Dosage: 20  TABLETE ONCE
     Route: 048
     Dates: start: 20120310
  3. DIOVAN [Suspect]
     Indication: HYPERTENSION
     Route: 048
     Dates: start: 1994
  4. DIOVAN [Suspect]
     Dosage: 20 TABLETS ONCE
     Route: 048
     Dates: start: 20120310
  5. ROHYPNOL [Suspect]
     Indication: INSOMNIA
     Route: 048
  6. ROHYPNOL [Suspect]
     Dosage: 20 TABLETS ONCE
     Route: 048
     Dates: start: 20120310
  7. CALBLOCK [Suspect]
     Indication: INSOMNIA
     Route: 048
  8. CALBLOCK [Suspect]
     Dosage: 20 TABLETS ONCE
     Route: 048
     Dates: start: 20120310

REACTIONS (6)
  - Shock [Recovering/Resolving]
  - Hypotension [Recovering/Resolving]
  - Bradycardia [Not Recovered/Not Resolved]
  - Altered state of consciousness [Recovering/Resolving]
  - Overdose [Recovering/Resolving]
  - Insomnia [Recovering/Resolving]
